FAERS Safety Report 20814089 (Version 1)
Quarter: 2022Q2

REPORT INFORMATION
  Report Type: Spontaneous
  Country: FR (occurrence: FR)
  Receive Date: 20220511
  Receipt Date: 20220511
  Transmission Date: 20220721
  Serious: Yes (Other)
  Sender: FDA-Public Use
  Company Number: None

PATIENT
  Sex: Female

DRUGS (6)
  1. ALPRAZOLAM [Suspect]
     Active Substance: ALPRAZOLAM
     Dosage: UNK
  2. KETAMINE [Suspect]
     Active Substance: KETAMINE
     Dosage: UNK
  3. TRAMADOL HYDROCHLORIDE [Suspect]
     Active Substance: TRAMADOL HYDROCHLORIDE
     Dosage: UNK
  4. COCAINE [Suspect]
     Active Substance: COCAINE
     Dosage: UNK
  5. AMPHETAMINE [Suspect]
     Active Substance: AMPHETAMINE
     Dosage: UNK
  6. OXYBATE [Suspect]
     Active Substance: OXYBATE
     Dosage: UNK

REACTIONS (3)
  - Anterograde amnesia [Recovered/Resolved]
  - Victim of sexual abuse [Recovered/Resolved]
  - Victim of chemical submission [Recovered/Resolved]
